FAERS Safety Report 6167275-2 (Version None)
Quarter: 2009Q2

REPORT INFORMATION
  Report Type: 
  Country: None (occurrence: None)
  Receive Date: 20090424
  Receipt Date: 20090420
  Transmission Date: 20091009
  Serious: Yes (Death)
  Sender: FDA-Public Use
  Company Number: SE-TEVA-192236ISR

PATIENT
  Age: 57 Year
  Sex: Female

DRUGS (5)
  1. METHOTREXATE [Suspect]
     Dates: start: 20000101
  2. GLUCOCORTICOIDS [Suspect]
  3. AZATHIOPRINE [Suspect]
  4. MYCOPHENOLATE MOFETIL [Suspect]
  5. CYCLOPHOSPHAMIDE [Suspect]

REACTIONS (1)
  - PROGRESSIVE MULTIFOCAL LEUKOENCEPHALOPATHY [None]
